FAERS Safety Report 6538813-2 (Version None)
Quarter: 2010Q1

REPORT INFORMATION
  Report Type: 
  Country: None (occurrence: None)
  Receive Date: 20100115
  Receipt Date: 20100105
  Transmission Date: 20100710
  Serious: Yes (Hospitalization, Other)
  Sender: FDA-Public Use
  Company Number: CA-JNJFOC-20090400683

PATIENT
  Sex: Male
  Weight: 86 kg

DRUGS (19)
  1. REMICADE [Suspect]
     Route: 042
  2. REMICADE [Suspect]
     Route: 042
  3. REMICADE [Suspect]
     Route: 042
  4. REMICADE [Suspect]
     Route: 042
  5. REMICADE [Suspect]
     Route: 042
  6. REMICADE [Suspect]
     Route: 042
  7. REMICADE [Suspect]
     Route: 042
  8. REMICADE [Suspect]
     Route: 042
  9. REMICADE [Suspect]
     Indication: RHEUMATOID ARTHRITIS
     Route: 042
  10. DILAUDID [Concomitant]
  11. DILAUDID [Concomitant]
  12. METHADONE [Concomitant]
  13. METHADONE [Concomitant]
  14. GRAVOL TAB [Concomitant]
  15. PANTOPRAZOLE [Concomitant]
  16. PLAQUENIL [Concomitant]
  17. CALCIUM W/MAGNESIUM/ZINC [Concomitant]
  18. VITAMIN C [Concomitant]
  19. VITAMIN D [Concomitant]

REACTIONS (5)
  - ARTHRITIS INFECTIVE [None]
  - INFUSION RELATED REACTION [None]
  - KNEE ARTHROPLASTY [None]
  - NAUSEA [None]
  - RHEUMATOID ARTHRITIS [None]
